FAERS Safety Report 5771752-3 (Version None)
Quarter: 2008Q2

REPORT INFORMATION
  Report Type: 
  Country: None (occurrence: None)
  Receive Date: 20080601
  Receipt Date: 20080331
  Transmission Date: 20081010
  Serious: No
  Sender: FDA-Public Use
  Company Number: US200802006631

PATIENT
  Age: 83 Year
  Sex: Female

DRUGS (13)
  1. BYETTA [Suspect]
     Indication: TYPE 2 DIABETES MELLITUS
     Dosage: 5 UG, 2/D, SUBCUTANEOUS
     Route: 058
     Dates: start: 20071001
  2. GLIPIZIDE [Concomitant]
  3. LISINOPRIL [Concomitant]
  4. CARTIA XT [Concomitant]
  5. METOPROLOL TARTRATE [Concomitant]
  6. LASIX [Concomitant]
  7. CYMBALTA [Concomitant]
  8. LEVOTHYROXINE SODIUM [Concomitant]
  9. PROZAC [Concomitant]
  10. POTASSIUM (POTASSIUM) [Concomitant]
  11. ASA (ACETYSALICYLIC ACID) [Concomitant]
  12. NITROGLYCERIN [Concomitant]
  13. COLCHICINE (COLCHICINE) [Concomitant]

REACTIONS (6)
  - ANOREXIA [None]
  - BLOOD GLUCOSE INCREASED [None]
  - BRONCHITIS [None]
  - DIZZINESS [None]
  - NAUSEA [None]
  - PALPITATIONS [None]
